FAERS Safety Report 10359623 (Version 2)
Quarter: 2014Q3

REPORT INFORMATION
  Report Type: Report from Study
  Country: US (occurrence: US)
  Receive Date: 20140804
  Receipt Date: 20140804
  Transmission Date: 20150326
  Serious: Yes (Other)
  Sender: FDA-Public Use
  Company Number: US-ROCHE-770633

PATIENT

DRUGS (6)
  1. BORTEZOMIB [Suspect]
     Active Substance: BORTEZOMIB
     Indication: B-CELL LYMPHOMA
     Dosage: ON DAYS 1 AND 8
     Route: 042
  2. CYCLOPHOSPHAMIDE. [Suspect]
     Active Substance: CYCLOPHOSPHAMIDE
     Indication: B-CELL LYMPHOMA
     Dosage: EITHER 1000 MG/M2 OR 750 MG/M2
     Route: 042
  3. DOXORUBICIN [Suspect]
     Active Substance: DOXORUBICIN
     Indication: B-CELL LYMPHOMA
     Dosage: ON DAY 1
     Route: 042
  4. RITUXIMAB [Suspect]
     Active Substance: RITUXIMAB
     Indication: B-CELL LYMPHOMA
     Dosage: ON DAY 1
     Route: 042
  5. PREDNISONE. [Suspect]
     Active Substance: PREDNISONE
     Indication: B-CELL LYMPHOMA
     Dosage: ON DAY 1-5
     Route: 048
  6. RITUXIMAB [Suspect]
     Active Substance: RITUXIMAB
     Dosage: FOR LESS THAN 2 YR AS MAINTENANCE
     Route: 042

REACTIONS (13)
  - Thrombocytopenia [Unknown]
  - Nausea [Unknown]
  - Anaemia [Unknown]
  - Oropharyngeal candidiasis [Unknown]
  - Fatigue [Unknown]
  - Ventricular hypokinesia [Unknown]
  - Diarrhoea [Unknown]
  - Neutropenic sepsis [Unknown]
  - Herpes zoster [Unknown]
  - Leukopenia [Unknown]
  - Peripheral sensory neuropathy [Unknown]
  - Lymphopenia [Unknown]
  - Neutropenia [Unknown]
